FAERS Safety Report 21164153 (Version 1)
Quarter: 2022Q3

REPORT INFORMATION
  Report Type: Spontaneous
  Country: US (occurrence: US)
  Receive Date: 20220803
  Receipt Date: 20220803
  Transmission Date: 20221027
  Serious: No
  Sender: FDA-Public Use
  Company Number: US-JNJFOC-20220746396

PATIENT
  Age: 50 Year
  Sex: Female

DRUGS (2)
  1. SIMPONI [Suspect]
     Active Substance: GOLIMUMAB
     Indication: Ankylosing spondylitis
     Route: 058
     Dates: start: 202108
  2. SIMPONI [Suspect]
     Active Substance: GOLIMUMAB

REACTIONS (6)
  - Abdominal pain [Not Recovered/Not Resolved]
  - Injection site dryness [Not Recovered/Not Resolved]
  - Spinal pain [Not Recovered/Not Resolved]
  - Product dose omission issue [Unknown]
  - Injection site reaction [Not Recovered/Not Resolved]
  - Infection [Not Recovered/Not Resolved]

NARRATIVE: CASE EVENT DATE: 20220622
